FAERS Safety Report 20004708 (Version 2)
Quarter: 2022Q2

REPORT INFORMATION
  Report Type: Spontaneous
  Country: GB (occurrence: GB)
  Receive Date: 20211027
  Receipt Date: 20220412
  Transmission Date: 20220720
  Serious: Yes (Disabling, Other)
  Sender: FDA-Public Use
  Company Number: None

PATIENT
  Age: 22 Year
  Sex: Female
  Weight: 44 kg

DRUGS (2)
  1. SULFASALAZINE [Suspect]
     Active Substance: SULFASALAZINE
     Indication: Arthritis
     Dosage: 1500 MG
     Route: 048
     Dates: start: 20210820, end: 20210929
  2. METHOTREXATE [Concomitant]
     Active Substance: METHOTREXATE
     Indication: Arthritis
     Dosage: UNK

REACTIONS (22)
  - Mental disorder [Recovering/Resolving]
  - Depression suicidal [Unknown]
  - Hallucination, auditory [Recovering/Resolving]
  - Depression [Recovering/Resolving]
  - Anger [Recovering/Resolving]
  - Mania [Recovering/Resolving]
  - Derealisation [Recovering/Resolving]
  - Headache [Recovering/Resolving]
  - Confusional state [Recovering/Resolving]
  - Insomnia [Recovering/Resolving]
  - Fatigue [Recovering/Resolving]
  - Fatigue [Unknown]
  - Toothache [Recovering/Resolving]
  - Delusion [Recovering/Resolving]
  - Memory impairment [Recovering/Resolving]
  - Feeling abnormal [Recovering/Resolving]
  - Mood swings [Recovering/Resolving]
  - Anxiety [Recovering/Resolving]
  - Cognitive disorder [Recovering/Resolving]
  - Dissociation [Recovering/Resolving]
  - Tremor [Recovering/Resolving]
  - Asthenia [Recovering/Resolving]
